FAERS Safety Report 12059998 (Version 5)
Quarter: 2020Q3

REPORT INFORMATION
  Report Type: Spontaneous
  Country: FR (occurrence: FR)
  Receive Date: 20160210
  Receipt Date: 20200723
  Transmission Date: 20201102
  Serious: Yes (Life-Threatening, Hospitalization, Other)
  Sender: FDA-Public Use
  Company Number: FR-TEVA-634084ISR

PATIENT
  Age: 58 Year
  Sex: Female

DRUGS (6)
  1. OXAZEPAM. [Suspect]
     Active Substance: OXAZEPAM
     Indication: PRODUCT USED FOR UNKNOWN INDICATION
     Route: 065
  2. CITALOPRAM [Suspect]
     Active Substance: CITALOPRAM HYDROBROMIDE
     Indication: PRODUCT USED FOR UNKNOWN INDICATION
     Route: 065
  3. ZOPICLONE [Suspect]
     Active Substance: ZOPICLONE
     Indication: PRODUCT USED FOR UNKNOWN INDICATION
     Route: 065
  4. NAPROXEN. [Suspect]
     Active Substance: NAPROXEN
  5. NAPROXEN. [Suspect]
     Active Substance: NAPROXEN
     Indication: PRODUCT USED FOR UNKNOWN INDICATION
     Route: 065
  6. ACEBUTOLOL [Concomitant]
     Active Substance: ACEBUTOLOL
     Indication: PRODUCT USED FOR UNKNOWN INDICATION
     Route: 065

REACTIONS (11)
  - Haemodynamic instability [Recovered/Resolved]
  - Cardiogenic shock [Recovering/Resolving]
  - Hypocoagulable state [Recovered/Resolved]
  - Thrombocytopenia [Recovered/Resolved]
  - Coma [Recovered/Resolved]
  - Transaminases increased [Recovering/Resolving]
  - Toxicity to various agents [Recovered/Resolved]
  - Suicide attempt [Recovering/Resolving]
  - Intentional overdose [Recovered/Resolved]
  - Pneumonia aspiration [Unknown]
  - Lactic acidosis [Recovered/Resolved]
